FAERS Safety Report 10472362 (Version 4)
Quarter: 2014Q4

REPORT INFORMATION
  Report Type: Spontaneous
  Country: US (occurrence: None)
  Receive Date: 20140922
  Receipt Date: 20141022
  Transmission Date: 20150528
  Serious: Yes (Hospitalization, Other)
  Sender: FDA-Public Use
  Company Number: ADR-2014-01706

PATIENT
  Age: 30 Year
  Sex: Male

DRUGS (1)
  1. BACLOFEN. [Suspect]
     Active Substance: BACLOFEN
     Indication: MUSCLE SPASTICITY
     Dosage: SEE B5

REACTIONS (25)
  - Vomiting [None]
  - Muscle spasticity [None]
  - Drooling [None]
  - Urinary retention [None]
  - Foaming at mouth [None]
  - Incision site vesicles [None]
  - Fluid intake reduced [None]
  - Skin injury [None]
  - Decreased appetite [None]
  - Implant site extravasation [None]
  - Malaise [None]
  - Pain [None]
  - Purulent discharge [None]
  - Overdose [None]
  - Catheter site infection [None]
  - Blood urine present [None]
  - Feeding disorder [None]
  - Wound dehiscence [None]
  - Implant site infection [None]
  - Abasia [None]
  - Infection [None]
  - Bruxism [None]
  - Lethargy [None]
  - Erythema [None]
  - Medical device complication [None]
